FAERS Safety Report 5778353-1 (Version None)
Quarter: 2008Q2

REPORT INFORMATION
  Report Type: 
  Country: None (occurrence: None)
  Receive Date: 20080601
  Receipt Date: 20080111
  Transmission Date: 20081010
  Serious: No
  Sender: FDA-Public Use
  Company Number: US200801002627

PATIENT
  Sex: Female

DRUGS (1)
  1. BYETTA [Suspect]
     Indication: WEIGHT CONTROL
     Dosage: 5 UG, 2/D, SUBCUTANEOUS
     Route: 058
     Dates: start: 20080110

REACTIONS (7)
  - COUGH [None]
  - DIZZINESS [None]
  - FATIGUE [None]
  - INJECTION SITE EXTRAVASATION [None]
  - INSOMNIA [None]
  - MALAISE [None]
  - NERVOUSNESS [None]
